FAERS Safety Report 8590701-6 (Version None)
Quarter: 2012Q3

REPORT INFORMATION
  Report Type: 
  Country: None (occurrence: None)
  Receive Date: 20120813
  Receipt Date: 20120807
  Transmission Date: 20120928
  Serious: Yes (Hospitalization, Other)
  Sender: FDA-Public Use
  Company Number: DE-ROCHE-775234

PATIENT
  Age: 68 Year
  Sex: Male
  Weight: 69 kg

DRUGS (9)
  1. TAMSULOSIN HCL [Concomitant]
  2. MABTHERA [Suspect]
     Indication: RHEUMATOID ARTHRITIS
     Dosage: APPLICATIONS ON 6 JAN 2011 AND 19 JAN 2011
     Route: 042
     Dates: start: 20110106, end: 20110119
  3. INSUMAN RAPID [Concomitant]
     Indication: DIABETES MELLITUS
  4. ISOPHANE INSULIN [Concomitant]
     Indication: DIABETES MELLITUS
     Dosage: ACCORDING TO BLOOD SUGAR
  5. VITAMIN D [Concomitant]
     Indication: OSTEOPOROSIS PROPHYLAXIS
     Route: 048
  6. ASPIRIN [Concomitant]
     Route: 048
  7. METHOTREXATE [Concomitant]
     Indication: RHEUMATOID ARTHRITIS
     Route: 058
  8. CALCIUM [Concomitant]
     Indication: OSTEOPOROSIS PROPHYLAXIS
     Route: 048
  9. LEFLUNOMIDE [Concomitant]
     Indication: RHEUMATOID ARTHRITIS
     Route: 048

REACTIONS (5)
  - HYPERPLASIA [None]
  - PROSTATIC ACID PHOSPHATASE INCREASED [None]
  - POST PROCEDURAL HAEMATURIA [None]
  - BIOPSY PROSTATE [None]
  - BLADDER TAMPONADE [None]
